FAERS Safety Report 21942493 (Version 1)
Quarter: 2023Q1

REPORT INFORMATION
  Report Type: Spontaneous
  Country: GR (occurrence: GR)
  Receive Date: 20230202
  Receipt Date: 20230202
  Transmission Date: 20230417
  Serious: No
  Sender: FDA-Public Use
  Company Number: GR-EXELIXIS-CABO-22057898

PATIENT

DRUGS (1)
  1. CABOMETYX [Suspect]
     Active Substance: CABOZANTINIB S-MALATE
     Indication: Hepatic neoplasm
     Dosage: UNK

REACTIONS (2)
  - Renal cancer [Unknown]
  - Diarrhoea [Unknown]
